FAERS Safety Report 6435093-3 (Version None)
Quarter: 2009Q4

REPORT INFORMATION
  Report Type: 
  Country: None (occurrence: None)
  Receive Date: 20091110
  Receipt Date: 20091029
  Transmission Date: 20100525
  Serious: Yes (Other)
  Sender: FDA-Public Use
  Company Number: US-PFIZER INC-2008072050

PATIENT
  Sex: Female
  Weight: 92.971 kg

DRUGS (3)
  1. CHANTIX [Suspect]
     Dosage: UNK
     Dates: start: 20070205
  2. IRON [Concomitant]
  3. NICOTINE [Concomitant]

REACTIONS (11)
  - ARTHRITIS [None]
  - BLOOD CHOLESTEROL INCREASED [None]
  - COLITIS ULCERATIVE [None]
  - DRUG DEPENDENCE [None]
  - DYSPNOEA [None]
  - FATIGUE [None]
  - LUNG DISORDER [None]
  - NERVOUSNESS [None]
  - OSTEOARTHRITIS [None]
  - THYROID DISORDER [None]
  - WEIGHT INCREASED [None]
